FAERS Safety Report 5153350-8 (Version None)
Quarter: 2006Q4

REPORT INFORMATION
  Report Type: 
  Country: None (occurrence: None)
  Receive Date: 20061117
  Receipt Date: 20061108
  Transmission Date: 20070319
  Serious: Yes (Hospitalization)
  Sender: FDA-Public Use
  Company Number: US-JNJFOC-20061102128

PATIENT
  Sex: Female

DRUGS (8)
  1. TYLENOL [Suspect]
  2. TYLENOL [Suspect]
     Indication: HEADACHE
  3. ASPIRIN [Suspect]
     Indication: PROPHYLAXIS
  4. SUDAFED 12 HOUR [Suspect]
     Indication: RESPIRATORY TRACT CONGESTION
     Dosage: 1-2 DAILY AS NEEDED
     Route: 048
  5. METFORMIN [Suspect]
     Indication: POLYCYSTIC OVARIES
  6. ROBITUSSIN [Suspect]
     Indication: RESPIRATORY TRACT CONGESTION
  7. AMOXICILLIN [Suspect]
     Indication: BRONCHITIS
     Dosage: 1-2 TIMES DAILY
  8. ZITHROMAX [Suspect]
     Indication: BRONCHITIS
     Dosage: 1-2 TIMES DAILY

REACTIONS (2)
  - CAESAREAN SECTION [None]
  - DRUG EXPOSURE DURING PREGNANCY [None]
